FAERS Safety Report 12084644 (Version 1)
Quarter: 2016Q1

REPORT INFORMATION
  Report Type: Spontaneous
  Country: FR (occurrence: FR)
  Receive Date: 20160217
  Receipt Date: 20160217
  Transmission Date: 20160526
  Serious: Yes (Hospitalization)
  Sender: FDA-Public Use
  Company Number: PHHY2016FR019470

PATIENT
  Age: 67 Year
  Sex: Male

DRUGS (7)
  1. AMAREL [Suspect]
     Active Substance: GLIMEPIRIDE
     Indication: TYPE 1 DIABETES MELLITUS
     Dosage: 2 MG, QD (IN MORNING)
     Route: 048
     Dates: end: 20160124
  2. ENALAPRIL [Suspect]
     Active Substance: ENALAPRIL
     Indication: HYPERTENSION
     Dosage: 20 MG, QD (IN MORNING)
     Route: 048
     Dates: end: 20160124
  3. TRIMEBUTINE [Concomitant]
     Active Substance: TRIMEBUTINE
     Indication: PRODUCT USED FOR UNKNOWN INDICATION
     Route: 065
  4. ALPRAZOLAM. [Suspect]
     Active Substance: ALPRAZOLAM
     Indication: PRODUCT USED FOR UNKNOWN INDICATION
     Dosage: 0.5 MG, BID (IN MORNING AND EVENING)
     Route: 048
     Dates: end: 20160124
  5. ZOLPIDEM [Suspect]
     Active Substance: ZOLPIDEM\ZOLPIDEM TARTRATE
     Indication: PRODUCT USED FOR UNKNOWN INDICATION
     Dosage: UNK, PRN (IN EVENING)
     Route: 048
     Dates: end: 20160124
  6. EUCREAS [Suspect]
     Active Substance: METFORMIN HYDROCHLORIDE\VILDAGLIPTIN
     Indication: TYPE 1 DIABETES MELLITUS
     Dosage: 1 DF, BID (MORNING AND EVENING)
     Route: 048
     Dates: end: 20160124
  7. ESCITALOPRAM [Suspect]
     Active Substance: ESCITALOPRAM OXALATE
     Indication: DEPRESSION
     Dosage: 20 MG, QD (IN MORNING)
     Route: 048
     Dates: end: 20160124

REACTIONS (2)
  - Metabolic acidosis [Recovered/Resolved]
  - Acute kidney injury [Recovered/Resolved]

NARRATIVE: CASE EVENT DATE: 20160123
